FAERS Safety Report 7038530-9 (Version None)
Quarter: 2010Q4

REPORT INFORMATION
  Report Type: 
  Country: None (occurrence: None)
  Receive Date: 20101011
  Receipt Date: 20100218
  Transmission Date: 20110411
  Serious: No
  Sender: FDA-Public Use
  Company Number: US-PFIZER INC-2010021941

PATIENT
  Sex: Male
  Weight: 84.8 kg

DRUGS (7)
  1. GABAPENTIN [Suspect]
     Indication: NEURALGIA
     Dosage: UNK
     Route: 048
  2. EPLERENONE [Concomitant]
     Dosage: 25 MG, UNK
     Route: 048
  3. LANOXIN [Concomitant]
     Dosage: 12.5 MG, 1X/DAY
     Route: 048
  4. ASPIRIN [Concomitant]
     Dosage: 82 MG, 2X/DAY
     Route: 048
  5. FUROSEMIDE [Concomitant]
     Indication: OEDEMA PERIPHERAL
     Dosage: 50 MG, UNK
     Route: 048
  6. TOPROL-XL [Concomitant]
     Dosage: 50 MG, 1X/DAY
     Route: 048
  7. LIPITOR [Concomitant]
     Indication: BLOOD CHOLESTEROL INCREASED
     Dosage: 40 MG, UNK
     Route: 048

REACTIONS (3)
  - MUSCULOSKELETAL CHEST PAIN [None]
  - PAIN [None]
  - SOMNOLENCE [None]
